FAERS Safety Report 7711038-0 (Version None)
Quarter: 2011Q3

REPORT INFORMATION
  Report Type: 
  Country: None (occurrence: None)
  Receive Date: 20110825
  Receipt Date: 20110822
  Transmission Date: 20111222
  Serious: Yes (Other)
  Sender: FDA-Public Use
  Company Number: FR-BRISTOL-MYERS SQUIBB COMPANY-15597164

PATIENT
  Age: 65 Year
  Sex: Female

DRUGS (3)
  1. TAXOL [Suspect]
     Indication: BREAST CANCER
     Dosage: THERAPY ON 17SEP09-FEB10,NO OF CYCLES:6,30JUN10-15SEP10
     Route: 042
     Dates: start: 20090917, end: 20100915
  2. CLASTOBAN [Suspect]
     Indication: BREAST CANCER
     Dosage: THERAPY ON 30JUN10-15SEP10
     Dates: start: 20100915, end: 20101001
  3. AVASTIN [Suspect]
     Indication: BREAST CANCER
     Dosage: AVASTIN 25MG/ML,THERAPY ON 17SEP09-FEB10,NO OF CYCLES:6,MAR10-JUN10,30JUN10-15SEP10
     Route: 042
     Dates: start: 20090917, end: 20101117

REACTIONS (1)
  - OSTEONECROSIS OF JAW [None]
